FAERS Safety Report 17655671 (Version 1)
Quarter: 2020Q2

REPORT INFORMATION
  Report Type: Spontaneous
  Country: JP (occurrence: JP)
  Receive Date: 20200410
  Receipt Date: 20200410
  Transmission Date: 20200713
  Serious: Yes (Death, Other)
  Sender: FDA-Public Use
  Company Number: JP-CELGENEUS-JPN-20190605305

PATIENT
  Age: 78 Year
  Sex: Female

DRUGS (2)
  1. VIDAZA [Suspect]
     Active Substance: AZACITIDINE
     Indication: MYELODYSPLASTIC SYNDROME
     Route: 041
  2. VIDAZA [Suspect]
     Active Substance: AZACITIDINE
     Route: 041

REACTIONS (4)
  - Oesophageal ulcer [Unknown]
  - Behcet^s syndrome [Fatal]
  - Pneumonia [Recovering/Resolving]
  - Stomatitis [Unknown]
